FAERS Safety Report 6405770-9 (Version None)
Quarter: 2009Q4

REPORT INFORMATION
  Report Type: 
  Country: None (occurrence: None)
  Receive Date: 20091016
  Receipt Date: 20091016
  Transmission Date: 20100525
  Serious: Yes (Death)
  Sender: FDA-Public Use
  Company Number: None

PATIENT
  Sex: Female

DRUGS (9)
  1. REVLIMID [Suspect]
     Indication: LYMPHOMA
     Dosage: 10MG DAILY 21D/28D ORALLY
     Route: 048
     Dates: start: 20070401, end: 20071201
  2. REVLIMID [Suspect]
     Indication: LYMPHOMA
     Dosage: 10MG DAILY 21D/28D ORALLY
     Route: 048
     Dates: start: 20080901, end: 20081201
  3. ALLOPURINOL [Concomitant]
  4. LOSARTAN [Concomitant]
  5. FLUOXETINE [Concomitant]
  6. DILTIAZEM [Concomitant]
  7. COZAAR [Concomitant]
  8. LEVOTHROID [Concomitant]
  9. CITALOPRAM HYDROBROMIDE [Concomitant]

REACTIONS (1)
  - NEUTROPENIA [None]
